FAERS Safety Report 7646768-2 (Version None)
Quarter: 2011Q3

REPORT INFORMATION
  Report Type: 
  Country: None (occurrence: None)
  Receive Date: 20110801
  Receipt Date: 20110728
  Transmission Date: 20111222
  Serious: Yes (Other)
  Sender: FDA-Public Use
  Company Number: DK-BRISTOL-MYERS SQUIBB COMPANY-15869589

PATIENT
  Age: 53 Year
  Sex: Female

DRUGS (3)
  1. ABILIFY [Suspect]
     Indication: DEPRESSION
     Dosage: 1DF=2,5 MG
     Route: 048
  2. VALDOXAN [Suspect]
  3. SERTRALINE HYDROCHLORIDE [Suspect]
     Indication: DEPRESSION
     Dosage: SERTRALIN DOSE WAS REDUCED TO 50 MG.

REACTIONS (6)
  - TREMOR [None]
  - RESTLESSNESS [None]
  - PALPITATIONS [None]
  - HYPERHIDROSIS [None]
  - IMPULSIVE BEHAVIOUR [None]
  - COGNITIVE DISORDER [None]
